FAERS Safety Report 16433277 (Version 1)
Quarter: 2019Q2

REPORT INFORMATION
  Report Type: Spontaneous
  Country: US (occurrence: US)
  Receive Date: 20190614
  Receipt Date: 20190614
  Transmission Date: 20190711
  Serious: No
  Sender: FDA-Public Use
  Company Number: US-JNJFOC-20170514886

PATIENT
  Sex: Male

DRUGS (7)
  1. RAPAFLO [Concomitant]
     Active Substance: SILODOSIN
  2. SINGULAIR [Concomitant]
     Active Substance: MONTELUKAST SODIUM
  3. IMBRUVICA [Suspect]
     Active Substance: IBRUTINIB
     Indication: MANTLE CELL LYMPHOMA
     Route: 048
     Dates: start: 20161222
  4. PANTOPRAZOLE [Concomitant]
     Active Substance: PANTOPRAZOLE
  5. TUMS [Concomitant]
     Active Substance: CALCIUM CARBONATE
  6. FUROSEMIDE. [Concomitant]
     Active Substance: FUROSEMIDE
  7. LIPITOR [Concomitant]
     Active Substance: ATORVASTATIN CALCIUM

REACTIONS (1)
  - Peripheral swelling [Unknown]
